FAERS Safety Report 24916080 (Version 1)
Quarter: 2025Q1

REPORT INFORMATION
  Report Type: Spontaneous
  Country: US (occurrence: US)
  Receive Date: 20250203
  Receipt Date: 20250203
  Transmission Date: 20250409
  Serious: Yes (Disabling, Other)
  Sender: REGENERON
  Company Number: US-REGENERON PHARMACEUTICALS, INC.-2025-024528

PATIENT
  Sex: Male

DRUGS (4)
  1. EYLEA [Suspect]
     Active Substance: AFLIBERCEPT
     Indication: Product used for unknown indication
     Dosage: 2 MG, BOTH EYES, EVERY 4 WEEKS, FORMULATION: UNKNOWN
     Dates: start: 2023
  2. EYLEA [Suspect]
     Active Substance: AFLIBERCEPT
     Dosage: 2 MG, BOTH EYES, EVERY 6 WEEKS, FORMULATION: UNKNOWN
  3. EYLEA [Suspect]
     Active Substance: AFLIBERCEPT
     Dosage: 2 MG, BOTH EYES, EVERY 8 WEEKS, FORMULATION: UNKNOWN
  4. EYLEA [Suspect]
     Active Substance: AFLIBERCEPT
     Dosage: 2 MG, BOTH EYES, EVERY 6 WEEKS, FORMULATION: UNKNOWN
     Dates: start: 2024

REACTIONS (5)
  - Leg amputation [Recovered/Resolved]
  - Eye disorder [Unknown]
  - Condition aggravated [Unknown]
  - Localised infection [Unknown]
  - Product dose omission issue [Unknown]

NARRATIVE: CASE EVENT DATE: 20240401
